FAERS Safety Report 7969022-8 (Version None)
Quarter: 2011Q4

REPORT INFORMATION
  Report Type: 
  Country: None (occurrence: None)
  Receive Date: 20111209
  Receipt Date: 20111205
  Transmission Date: 20120403
  Serious: No
  Sender: FDA-Public Use
  Company Number: US-BAYER-2011-117230

PATIENT
  Age: 89 Year
  Sex: Male
  Weight: 86 kg

DRUGS (10)
  1. LEVOTHYROXINE SODIUM [Concomitant]
  2. POTASSIUM CHLORIDE [Concomitant]
  3. ALEVE (CAPLET) [Suspect]
     Dosage: 1 TABLET ONCE A DAY
     Route: 048
     Dates: start: 20111203, end: 20111205
  4. FLOMAX [Concomitant]
  5. FUROSEMIDE [Concomitant]
  6. ALEVE (CAPLET) [Suspect]
     Indication: PAIN
     Dosage: 1 TABLET EVERY 6 HOURS ON 3 SEPARATE DAYS
     Route: 048
     Dates: start: 20111128
  7. CARDIOL [CARVEDILOL] [Concomitant]
  8. JANUVIA [Concomitant]
  9. GLIMEPIRIDE [Concomitant]
  10. LOVAZA [Concomitant]

REACTIONS (1)
  - PAIN [None]
